FAERS Safety Report 8838718 (Version 1)
Quarter: 2012Q4

REPORT INFORMATION
  Report Type: 
  Country: FR (occurrence: FR)
  Receive Date: 20121012
  Receipt Date: 20121012
  Transmission Date: 20130627
  Serious: Yes (Death)
  Sender: FDA-Public Use
  Company Number: FR-B.I. PHARMACEUTICALS,INC./RIDGEFIELD-2012-FF-01444FF

PATIENT
  Age: 70 Year
  Sex: Female

DRUGS (3)
  1. PRADAXA [Suspect]
     Indication: ATRIAL FLUTTER
     Dosage: 220 mg
     Route: 048
     Dates: start: 20120929
  2. CARDENSIEL [Concomitant]
  3. TRIATEC [Concomitant]

REACTIONS (3)
  - Death [Fatal]
  - Clonus [Fatal]
  - Eye movement disorder [Fatal]
